FAERS Safety Report 4659781-4 (Version None)
Quarter: 2005Q2

REPORT INFORMATION
  Report Type: 
  Country: None (occurrence: None)
  Receive Date: 20050512
  Receipt Date: 20050502
  Transmission Date: 20051028
  Serious: Yes (Disabling)
  Sender: FDA-Public Use
  Company Number: US-JNJFOC-20041007669

PATIENT
  Sex: Male
  Weight: 69.85 kg

DRUGS (11)
  1. REMICADE [Suspect]
     Route: 042
  2. REMICADE [Suspect]
     Route: 042
  3. REMICADE [Suspect]
     Indication: RHEUMATOID ARTHRITIS
     Route: 042
  4. CELEBREX [Concomitant]
  5. LORTAB [Concomitant]
  6. LORTAB [Concomitant]
     Dosage: 10/500, AS NEEDED
  7. PREVACID [Concomitant]
  8. WELLBUTRIN XL [Concomitant]
  9. SOMA [Concomitant]
  10. XANAX [Concomitant]
     Dosage: 1-2 MG DAILY
  11. PROMETHAZINE [Concomitant]

REACTIONS (12)
  - ABDOMINAL PAIN [None]
  - BLOOD PRESSURE DECREASED [None]
  - DYSPNOEA [None]
  - FATIGUE [None]
  - FEELING ABNORMAL [None]
  - HEADACHE [None]
  - INFLUENZA LIKE ILLNESS [None]
  - NAUSEA [None]
  - PRURITUS [None]
  - URTICARIA [None]
  - VISION BLURRED [None]
  - WEIGHT INCREASED [None]
